FAERS Safety Report 7721124-7 (Version None)
Quarter: 2011Q3

REPORT INFORMATION
  Report Type: 
  Country: None (occurrence: None)
  Receive Date: 20110830
  Receipt Date: 20110830
  Transmission Date: 20111222
  Serious: Yes (Hospitalization)
  Sender: FDA-Public Use
  Company Number: None

PATIENT
  Age: 50 Year
  Sex: Female
  Weight: 68.0396 kg

DRUGS (2)
  1. NAPROXEN [Suspect]
     Dosage: 550 MG 2DAILY ORAL
     Route: 048
     Dates: start: 20110311
  2. NAPROXEN [Suspect]
     Dosage: 550 MG 2DAILY ORAL
     Route: 048
     Dates: start: 20110312

REACTIONS (5)
  - ECONOMIC PROBLEM [None]
  - DYSPNOEA [None]
  - LOSS OF CONSCIOUSNESS [None]
  - DIARRHOEA [None]
  - RECTAL HAEMORRHAGE [None]
